FAERS Safety Report 25059893 (Version 1)
Quarter: 2025Q1

REPORT INFORMATION
  Report Type: Spontaneous
  Country: US (occurrence: US)
  Receive Date: 20250310
  Receipt Date: 20250310
  Transmission Date: 20250409
  Serious: No
  Sender: MYLAN
  Company Number: US-MYLANLABS-2025M1012980

PATIENT
  Age: 89 Year
  Sex: Female
  Weight: 59.87 kg

DRUGS (1)
  1. WIXELA INHUB [Suspect]
     Active Substance: FLUTICASONE PROPIONATE\SALMETEROL XINAFOATE
     Indication: Product used for unknown indication

REACTIONS (3)
  - Illness [Unknown]
  - Product contamination physical [Unknown]
  - Product tampering [Unknown]

NARRATIVE: CASE EVENT DATE: 20250101
